FAERS Safety Report 7919953-X (Version None)
Quarter: 2011Q4

REPORT INFORMATION
  Report Type: 
  Country: None (occurrence: None)
  Receive Date: 20111117
  Receipt Date: 20110814
  Transmission Date: 20120403
  Serious: No
  Sender: FDA-Public Use
  Company Number: US-BAYER-2011-076687

PATIENT
  Sex: Female

DRUGS (3)
  1. ALEVE (CAPLET) [Suspect]
     Indication: FATIGUE
  2. ALEVE (CAPLET) [Suspect]
     Indication: ABDOMINAL DISTENSION
  3. ALEVE (CAPLET) [Suspect]
     Indication: DYSMENORRHOEA

REACTIONS (1)
  - DYSMENORRHOEA [None]
